FAERS Safety Report 12622594 (Version 1)
Quarter: 2016Q3

REPORT INFORMATION
  Report Type: Report from Study
  Country: AR (occurrence: AR)
  Receive Date: 20160804
  Receipt Date: 20160804
  Transmission Date: 20161109
  Serious: Yes (Other)
  Sender: FDA-Public Use
  Company Number: AR-ABBVIE-16K-007-1692643-00

PATIENT
  Age: 47 Year
  Sex: Female

DRUGS (1)
  1. HUMIRA [Suspect]
     Active Substance: ADALIMUMAB
     Indication: CROHN^S DISEASE
     Route: 058
     Dates: start: 20120918

REACTIONS (4)
  - Oesophageal achalasia [Not Recovered/Not Resolved]
  - Abdominal discomfort [Unknown]
  - Gastric hypomotility [Unknown]
  - Pain [Unknown]

NARRATIVE: CASE EVENT DATE: 201606
